FAERS Safety Report 10064567 (Version 1)
Quarter: 2014Q2

REPORT INFORMATION
  Report Type: Spontaneous
  Country: GB (occurrence: GB)
  Receive Date: 20140408
  Receipt Date: 20140408
  Transmission Date: 20141212
  Serious: Yes (Other)
  Sender: FDA-Public Use
  Company Number: GB-TEVA-472689ISR

PATIENT
  Sex: Female

DRUGS (4)
  1. METFORMIN [Suspect]
     Indication: DIABETES MELLITUS
  2. APIXABAN [Interacting]
     Indication: HIP ARTHROPLASTY
  3. APIXABAN [Interacting]
     Indication: KNEE ARTHROPLASTY
  4. IBUPROFEN [Suspect]

REACTIONS (2)
  - Creatinine renal clearance abnormal [Unknown]
  - Drug interaction [Unknown]
